FAERS Safety Report 20912510 (Version 1)
Quarter: 2022Q2

REPORT INFORMATION
  Report Type: Spontaneous
  Country: CA (occurrence: CA)
  Receive Date: 20220603
  Receipt Date: 20220603
  Transmission Date: 20220721
  Serious: Yes (Other)
  Sender: FDA-Public Use
  Company Number: CA-MODERNATX, INC.-MOD-2022-579444

PATIENT
  Age: 56 Year
  Sex: Female

DRUGS (16)
  1. MODERNA COVID-19 VACCINE [Suspect]
     Active Substance: ELASOMERAN
     Indication: COVID-19 immunisation
     Dosage: 0.5 MILLILITER
     Route: 065
  2. HUMAN IMMUNOGLOBULIN G [Suspect]
     Active Substance: HUMAN IMMUNOGLOBULIN G
     Indication: Primary immunodeficiency syndrome
     Dosage: 14 GRAM, QWK (1 EVERY 1 WEEK)
     Route: 065
  3. HUMAN IMMUNOGLOBULIN G [Suspect]
     Active Substance: HUMAN IMMUNOGLOBULIN G
     Dosage: 2 GRAM (SOLUTION FOR INFUSION, 1 EVERY 1 WEEK)
     Route: 058
  4. TRAMADOL [Concomitant]
     Active Substance: TRAMADOL
     Indication: Product used for unknown indication
     Dosage: TABLETS
     Route: 048
  5. ATACAND [Concomitant]
     Active Substance: CANDESARTAN CILEXETIL
     Indication: Product used for unknown indication
     Dosage: TABLETS
     Route: 048
  6. ATENOLOL [Concomitant]
     Active Substance: ATENOLOL
     Indication: Product used for unknown indication
     Dosage: TABLETS
     Route: 048
  7. DETROL LA [Concomitant]
     Active Substance: TOLTERODINE TARTRATE
     Indication: Product used for unknown indication
     Dosage: CAPSULE, SUSTAINED RELEASE
     Route: 048
  8. DEXILANT [Concomitant]
     Active Substance: DEXLANSOPRAZOLE
     Indication: Product used for unknown indication
     Dosage: CAPSULE, DELAYED RELEASE
     Route: 048
  9. EZETIMIBE [Concomitant]
     Active Substance: EZETIMIBE
     Indication: Product used for unknown indication
     Dosage: TABLETS
     Route: 048
  10. GRAVOL [Concomitant]
     Active Substance: DIMENHYDRINATE
     Indication: Product used for unknown indication
     Dosage: 2 DOSAGE FORM, QD, 1 EVERY 1 DAY
     Route: 065
  11. HIZENTRA [Concomitant]
     Active Substance: HUMAN IMMUNOGLOBULIN G
     Indication: Product used for unknown indication
     Dosage: SOLUTION
     Route: 065
  12. INSULIN NOS [Concomitant]
     Active Substance: INSULIN NOS
     Indication: Product used for unknown indication
     Dosage: GLOBULES ORAL
     Route: 065
  13. METFORMIN [Concomitant]
     Active Substance: METFORMIN HYDROCHLORIDE
     Indication: Product used for unknown indication
     Dosage: UNK
     Route: 065
  14. TRESIBA [Concomitant]
     Active Substance: INSULIN DEGLUDEC
     Indication: Product used for unknown indication
     Dosage: UNK
     Route: 065
  15. TRAMADOL HYDROCHLORIDE [Concomitant]
     Active Substance: TRAMADOL HYDROCHLORIDE
     Indication: Product used for unknown indication
     Dosage: TABLET (EXTENDED RELEASE)
     Route: 048
  16. ULTRAM [Concomitant]
     Active Substance: TRAMADOL HYDROCHLORIDE
     Indication: Product used for unknown indication
     Dosage: TABLET
     Route: 048

REACTIONS (50)
  - Abdominal discomfort [Unknown]
  - Arthralgia [Unknown]
  - Back pain [Unknown]
  - Bladder pain [Unknown]
  - Blood glucose decreased [Unknown]
  - Blood glucose increased [Unknown]
  - Blood insulin decreased [Unknown]
  - Blood insulin increased [Unknown]
  - COVID-19 immunisation [Unknown]
  - Chills [Unknown]
  - Contusion [Unknown]
  - Cystitis [Unknown]
  - Diarrhoea [Unknown]
  - Dizziness [Unknown]
  - Ear pain [Unknown]
  - Erythema [Unknown]
  - Fall [Unknown]
  - Fatigue [Unknown]
  - Haematochezia [Unknown]
  - Headache [Unknown]
  - Hyperhidrosis [Unknown]
  - Hyperkeratosis follicularis et parafollicularis [Unknown]
  - Infusion site erythema [Unknown]
  - Infusion site haemorrhage [Unknown]
  - Infusion site pruritus [Unknown]
  - Infusion site warmth [Unknown]
  - Injection site reaction [Unknown]
  - Irritable bowel syndrome [Unknown]
  - Malaise [Unknown]
  - Muscle spasms [Unknown]
  - Myalgia [Unknown]
  - Nausea [Unknown]
  - Neck pain [Unknown]
  - Oral pain [Unknown]
  - Oropharyngeal pain [Unknown]
  - Pain [Unknown]
  - Pain in extremity [Unknown]
  - Pain in jaw [Unknown]
  - Peripheral swelling [Unknown]
  - Pruritus [Unknown]
  - Rash [Unknown]
  - Rhinorrhoea [Unknown]
  - Sciatica [Unknown]
  - Sinus congestion [Unknown]
  - Tenderness [Unknown]
  - Throat irritation [Unknown]
  - Tonsillitis [Unknown]
  - Toothache [Unknown]
  - Vertigo [Unknown]
  - Visual impairment [Unknown]
